FAERS Safety Report 11227627 (Version 1)
Quarter: 2015Q2

REPORT INFORMATION
  Report Type: Spontaneous
  Country: US (occurrence: None)
  Receive Date: 20150626
  Receipt Date: 20150626
  Transmission Date: 20150821
  Serious: Yes (Other)
  Sender: FDA-Public Use
  Company Number: US-H14001-15-00740

PATIENT
  Age: 50 Year
  Sex: Female
  Weight: 119 kg

DRUGS (32)
  1. REGLAN [Suspect]
     Active Substance: METOCLOPRAMIDE HYDROCHLORIDE
     Indication: GASTROOESOPHAGEAL REFLUX DISEASE
  2. ASPIRIN (ACETYLSALICYLIC ACID [Concomitant]
  3. BONIVA [Concomitant]
     Active Substance: IBANDRONATE SODIUM
  4. PREDNISONE. [Concomitant]
     Active Substance: PREDNISONE
  5. ACTONEL (RISEDRONATE SODIUM) [Concomitant]
  6. LOVASTATIN. [Concomitant]
     Active Substance: LOVASTATIN
  7. RANITIDINE HCL (RANITIDINE HYDROCHLORIDE) [Concomitant]
  8. ALLOPURINOL. [Concomitant]
     Active Substance: ALLOPURINOL
  9. SIMVASTATIN. [Concomitant]
     Active Substance: SIMVASTATIN
  10. BETA BLOCKER (BETA BLOCKING AGENTS) [Concomitant]
     Active Substance: UNSPECIFIED INGREDIENT
  11. TYLENOL [Concomitant]
     Active Substance: ACETAMINOPHEN
  12. LEVOTHYROXINE SODIUM. [Concomitant]
     Active Substance: LEVOTHYROXINE SODIUM
  13. METOPROLOL TARTRATE. [Concomitant]
     Active Substance: METOPROLOL TARTRATE
  14. FLEXERIL [Concomitant]
     Active Substance: CYCLOBENZAPRINE HYDROCHLORIDE
  15. SPIRIVA HANDIHALER (TIOPROPIUM BROMIDE) [Concomitant]
  16. PROAIR HFA AERS (SALBUTAMOL SULFATE) [Concomitant]
  17. ADENOSINE (ADENOSINE) [Suspect]
     Active Substance: ADENOSINE
     Indication: SCAN MYOCARDIAL PERFUSION
     Route: 041
     Dates: start: 200806, end: 200806
  18. PHAZYME (PHAZYME/00164001/) (PANCREATIN, SIMETICONE, PEPSIN, DIASTASE) [Concomitant]
  19. VENTOLIN [Concomitant]
     Active Substance: ALBUTEROL SULFATE
  20. FEXOFENADINE HCL (FEXOFENADINE HYDROCHLORIDE) [Concomitant]
  21. LISINOPRIL. [Concomitant]
     Active Substance: LISINOPRIL
  22. FUROSEMIDE. [Concomitant]
     Active Substance: FUROSEMIDE
  23. ADVAIR DISKUS (SERETIDE) (UNKNOWN) (FLUTICASONE PROPIONATE, SALMETEROL XINAFOATE) [Concomitant]
  24. METFORMIN HCL (METFORMIN HYDROCHLORIDE) [Concomitant]
     Active Substance: METFORMIN HYDROCHLORIDE
  25. PROMETHAZINE HCL (PROMETHAZINE HYDROCHLORIDE) [Concomitant]
  26. DETROL LA [Concomitant]
     Active Substance: TOLTERODINE TARTRATE
  27. TRAMADOL HYDROCHLORIDE. [Concomitant]
     Active Substance: TRAMADOL HYDROCHLORIDE
  28. MOBIC [Concomitant]
     Active Substance: MELOXICAM
  29. TUMS (TUMS/00193601/) (CALCIUM CARBONATE, MAGNESIUM CARBONATE, MAGNESIUM TRISILICATE) [Concomitant]
  30. STEROIDS (CORTICOSTEROIDS) [Concomitant]
     Active Substance: UNSPECIFIED INGREDIENT
  31. ALLEGRA ALLERGY (FEXOFENADINE HYDROCHLORIDE) [Concomitant]
  32. PRILOSEC (OMEPRAZOLE) [Concomitant]
     Active Substance: OMEPRAZOLE MAGNESIUM

REACTIONS (15)
  - Electrocardiogram T wave abnormal [None]
  - Flushing [None]
  - Dizziness [None]
  - Sinus tachycardia [None]
  - Wheezing [None]
  - Restlessness [None]
  - Eructation [None]
  - Bronchospasm [None]
  - Drug hypersensitivity [None]
  - Confusional state [None]
  - Vomiting [None]
  - Nausea [None]
  - Gastrooesophageal reflux disease [None]
  - Dyspnoea [None]
  - Cough [None]

NARRATIVE: CASE EVENT DATE: 20080603
